FAERS Safety Report 9240366 (Version 2)
Quarter: 2013Q2

REPORT INFORMATION
  Report Type: Spontaneous
  Country: US (occurrence: US)
  Receive Date: 20130418
  Receipt Date: 20130423
  Transmission Date: 20140414
  Serious: No
  Sender: FDA-Public Use
  Company Number: US-PFIZER INC-2013120205

PATIENT
  Age: 56 Year
  Sex: Female
  Weight: 60.77 kg

DRUGS (7)
  1. LIPITOR [Suspect]
     Indication: LOW DENSITY LIPOPROTEIN
     Dosage: 10 MG, DAILY
     Dates: start: 2005
  2. LIPITOR [Suspect]
     Indication: STENT PLACEMENT
  3. LEVOXYL [Suspect]
     Dosage: UNK
     Dates: start: 2003, end: 2013
  4. NORVASC [Suspect]
     Indication: HYPERTENSION
     Dosage: 2.5 MG, 1X/DAY
  5. ATORVASTATIN CALCIUM [Suspect]
     Indication: LOW DENSITY LIPOPROTEIN
     Dosage: 10 MG, DAILY
     Dates: start: 20120912, end: 20130411
  6. COREG CR [Concomitant]
     Indication: CARDIAC DISORDER
     Dosage: 20 MG, DAILY
     Dates: start: 200509
  7. COREG CR [Concomitant]
     Indication: STENT PLACEMENT

REACTIONS (10)
  - Gastrointestinal sounds abnormal [Unknown]
  - Headache [Recovered/Resolved]
  - Arthralgia [Recovered/Resolved]
  - Back pain [Recovered/Resolved]
  - Urine analysis abnormal [Recovered/Resolved]
  - Abnormal faeces [Recovered/Resolved]
  - Abdominal pain lower [Recovered/Resolved]
  - Muscle twitching [Recovered/Resolved]
  - Feeling hot [Recovered/Resolved]
  - Insomnia [Unknown]
